FAERS Safety Report 18694181 (Version 1)
Quarter: 2021Q1

REPORT INFORMATION
  Report Type: Spontaneous
  Country: US (occurrence: US)
  Receive Date: 20210104
  Receipt Date: 20210104
  Transmission Date: 20210419
  Serious: No
  Sender: FDA-Public Use
  Company Number: US-SA-2020SA376888

PATIENT

DRUGS (1)
  1. ADMELOG [Suspect]
     Active Substance: INSULIN LISPRO
     Indication: TYPE 1 DIABETES MELLITUS
     Dosage: 60 IU, DAILY AND USES A SLIDING SCALE
     Route: 065

REACTIONS (3)
  - Extra dose administered [Unknown]
  - Diabetic neuropathy [Unknown]
  - Hyperglycaemia [Unknown]
